FAERS Safety Report 11250252 (Version 2)
Quarter: 2015Q3

REPORT INFORMATION
  Report Type: Spontaneous
  Country: US (occurrence: US)
  Receive Date: 20150708
  Receipt Date: 20150715
  Transmission Date: 20151125
  Serious: No
  Sender: FDA-Public Use
  Company Number: US-TEVA-576208USA

PATIENT
  Age: 44 Year
  Sex: Female
  Weight: 59.02 kg

DRUGS (3)
  1. QVAR [Suspect]
     Active Substance: BECLOMETHASONE DIPROPIONATE
     Indication: CHEST DISCOMFORT
     Dosage: 1 PUFF TWICE A DAY
     Route: 055
     Dates: start: 20150619
  2. QVAR [Suspect]
     Active Substance: BECLOMETHASONE DIPROPIONATE
     Indication: DYSPNOEA
  3. ALBUTERAL [Concomitant]
     Active Substance: ALBUTEROL
     Indication: DYSPNOEA

REACTIONS (4)
  - Dry throat [Unknown]
  - Bronchospasm [Not Recovered/Not Resolved]
  - Dry mouth [Not Recovered/Not Resolved]
  - Bronchial disorder [Not Recovered/Not Resolved]

NARRATIVE: CASE EVENT DATE: 20150629
